APPROVED DRUG PRODUCT: SODIUM PHENYLBUTYRATE
Active Ingredient: SODIUM PHENYLBUTYRATE
Strength: 3GM/TEASPOONFUL
Dosage Form/Route: POWDER;ORAL
Application: A202819 | Product #001 | TE Code: AB
Applicant: SIGMAPHARM LABORATORIES LLC
Approved: Mar 22, 2013 | RLD: No | RS: No | Type: RX